FAERS Safety Report 7403447-4 (Version None)
Quarter: 2011Q2

REPORT INFORMATION
  Report Type: 
  Country: None (occurrence: None)
  Receive Date: 20110408
  Receipt Date: 20110401
  Transmission Date: 20111010
  Serious: Yes (Other)
  Sender: FDA-Public Use
  Company Number: A0921848A

PATIENT

DRUGS (1)
  1. LOVAZA [Suspect]
     Route: 065

REACTIONS (1)
  - HEPATIC ENZYME INCREASED [None]
